FAERS Safety Report 21418873 (Version 1)
Quarter: 2022Q4

REPORT INFORMATION
  Report Type: Spontaneous
  Country: US (occurrence: None)
  Receive Date: 20221005
  Receipt Date: 20221005
  Transmission Date: 20230113
  Serious: Yes (Hospitalization)
  Sender: FDA-Public Use
  Company Number: None

PATIENT
  Age: 11 Year
  Sex: Male

DRUGS (12)
  1. OPSUMIT [Suspect]
     Active Substance: MACITENTAN
  2. TADALAFIL [Concomitant]
  3. AMINOCAPROIC ACID [Concomitant]
  4. SODIUM FLUORIDE [Concomitant]
  5. QUETIAPINE [Concomitant]
  6. PHYTONADIONE [Concomitant]
  7. FLONASE [Concomitant]
  8. ALVESCO HFA [Concomitant]
  9. ALBUTEROL HFA [Concomitant]
  10. ALBUTEROL INHL NE SOLN [Concomitant]
  11. GABAPENTIN [Concomitant]
     Active Substance: GABAPENTIN
  12. VITAMINS [Concomitant]
     Active Substance: VITAMINS

REACTIONS (1)
  - COVID-19 [None]

NARRATIVE: CASE EVENT DATE: 20220902
